FAERS Safety Report 5765406-7 (Version None)
Quarter: 2008Q2

REPORT INFORMATION
  Report Type: 
  Country: None (occurrence: None)
  Receive Date: 20080605
  Receipt Date: 20080326
  Transmission Date: 20081010
  Serious: No
  Sender: FDA-Public Use
  Company Number: DSM-2007-00270

PATIENT
  Age: 40 Year
  Sex: Female
  Weight: 70 kg

DRUGS (3)
  1. OLMESARTAN MEDOXOMIL [Suspect]
     Indication: HYPERTENSION
     Dosage: 20 MG (20 MG, 1 IN 1 D, ORAL
     Route: 048
     Dates: start: 20061201, end: 20070511
  2. CLOZAPINE (CLOZAPINE) (200 MILLIGRAM) (CLOZAPINE) [Concomitant]
  3. FLURAZEPAM (FLURAZEPAM) (30 MILLIGRAM) (FLURAZEPAM) [Concomitant]

REACTIONS (1)
  - ORTHOSTATIC HYPOTENSION [None]
